FAERS Safety Report 15818509 (Version 2)
Quarter: 2019Q1

REPORT INFORMATION
  Report Type: Spontaneous
  Country: US (occurrence: US)
  Receive Date: 20190113
  Receipt Date: 20190211
  Transmission Date: 20190417
  Serious: No
  Sender: FDA-Public Use
  Company Number: US-JNJFOC-20181214274

PATIENT
  Age: 56 Year
  Sex: Female
  Weight: 87.09 kg

DRUGS (5)
  1. LEVOTHYROXINE. [Concomitant]
     Active Substance: LEVOTHYROXINE
     Route: 065
  2. RISPERDAL CONSTA [Suspect]
     Active Substance: RISPERIDONE
     Indication: PRODUCT USED FOR UNKNOWN INDICATION
     Route: 030
  3. BENZTROPINE. [Concomitant]
     Active Substance: BENZTROPINE
     Route: 048
  4. PERPHENAZINE. [Concomitant]
     Active Substance: PERPHENAZINE
     Route: 048
  5. RISPERDONE [Concomitant]
     Active Substance: RISPERIDONE
     Route: 048

REACTIONS (3)
  - Product dose omission [Unknown]
  - Product packaging quantity issue [Unknown]
  - Product solubility abnormal [Unknown]

NARRATIVE: CASE EVENT DATE: 20181211
